FAERS Safety Report 8368128-1 (Version None)
Quarter: 2012Q2

REPORT INFORMATION
  Report Type: 
  Country: None (occurrence: None)
  Receive Date: 20120517
  Receipt Date: 20120504
  Transmission Date: 20120825
  Serious: No
  Sender: FDA-Public Use
  Company Number: AU-MYLANLABS-2012S1009321

PATIENT
  Age: 34 Year
  Sex: Female

DRUGS (3)
  1. MURELAX [Concomitant]
     Indication: ANXIETY
     Dates: start: 20120502
  2. ENDEP [Suspect]
     Indication: DEPRESSION
     Route: 048
     Dates: start: 20120101, end: 20120331
  3. AURORIX [Concomitant]
     Indication: ANXIETY
     Dates: start: 20120502

REACTIONS (3)
  - HYPERHIDROSIS [None]
  - HOT FLUSH [None]
  - CONSTIPATION [None]
